FAERS Safety Report 9894359 (Version 2)
Quarter: 2014Q4

REPORT INFORMATION
  Report Type: Report from Study
  Country: CO (occurrence: CO)
  Receive Date: 20140213
  Receipt Date: 20141211
  Transmission Date: 20150529
  Serious: Yes (Other)
  Sender: FDA-Public Use
  Company Number: CO-BAYER-2014-018484

PATIENT
  Age: 48 Year
  Sex: Female

DRUGS (1)
  1. BETAFERON [Suspect]
     Active Substance: INTERFERON BETA-1B
     Dosage: UNK, QOD
     Route: 058
     Dates: start: 20080101, end: 20141102

REACTIONS (8)
  - Hepatic steatosis [None]
  - Asthenia [None]
  - Hepatic enzyme increased [None]
  - Nausea [None]
  - Decreased appetite [None]
  - Abdominal pain [None]
  - Drug prescribing error [None]
  - Hepatomegaly [None]

NARRATIVE: CASE EVENT DATE: 20140101
